FAERS Safety Report 7700571-3 (Version None)
Quarter: 2011Q3

REPORT INFORMATION
  Report Type: 
  Country: None (occurrence: None)
  Receive Date: 20110822
  Receipt Date: 20110818
  Transmission Date: 20111222
  Serious: Yes (Hospitalization)
  Sender: FDA-Public Use
  Company Number: FI-PFIZER INC-2011144843

PATIENT
  Age: 48 Year
  Sex: Female

DRUGS (4)
  1. LYRICA [Suspect]
     Indication: NEURALGIA
     Dosage: 25 MG, 3X/DAY
     Dates: start: 20110615
  2. ARDINEX [Concomitant]
     Dosage: UNK
     Dates: start: 20110530, end: 20110601
  3. TIZANIDINE HCL [Concomitant]
     Dosage: UNK
     Dates: start: 20110530, end: 20110601
  4. IBUPROFEN [Concomitant]
     Dosage: UNK
     Dates: start: 20110530, end: 20110601

REACTIONS (1)
  - SYMPTOM MASKED [None]
